FAERS Safety Report 4860478-6 (Version None)
Quarter: 2005Q4

REPORT INFORMATION
  Report Type: 
  Country: None (occurrence: None)
  Receive Date: 20051215
  Receipt Date: 20051206
  Transmission Date: 20060501
  Serious: Yes (Other)
  Sender: FDA-Public Use
  Company Number: 2005-BP-21271RO

PATIENT
  Age: 50 Year
  Sex: Female

DRUGS (3)
  1. METHADONE HCL [Suspect]
     Indication: PAIN
     Dosage: 80 MG TID (NR), PO
     Route: 048
  2. OXYCOCET (OXYCOCET) NR [Concomitant]
  3. GABAPENTIN [Concomitant]

REACTIONS (1)
  - ELECTROCARDIOGRAM QT CORRECTED INTERVAL PROLONGED [None]
